FAERS Safety Report 9386644 (Version 5)
Quarter: 2014Q4

REPORT INFORMATION
  Report Type: Spontaneous
  Country: GB (occurrence: GB)
  Receive Date: 20130708
  Receipt Date: 20141021
  Transmission Date: 20150529
  Serious: Yes (Other)
  Sender: FDA-Public Use
  Company Number: PHFR2013GB003834

PATIENT
  Age: 44 Year
  Sex: Female
  Weight: 58.5 kg

DRUGS (7)
  1. CLOZARIL [Suspect]
     Active Substance: CLOZAPINE
     Indication: SCHIZOPHRENIA, PARANOID TYPE
     Dosage: 300 MG, DAILY
     Route: 048
     Dates: start: 20090320, end: 201209
  2. ZOPLICONE [Concomitant]
     Active Substance: ZOPICLONE
     Indication: INSOMNIA
     Dosage: 7.5 MG, PRN
     Route: 048
  3. CLOZARIL [Suspect]
     Active Substance: CLOZAPINE
     Indication: SCHIZOAFFECTIVE DISORDER
     Dosage: 350 MG, DAILY
     Route: 048
     Dates: start: 201209
  4. DOSULEPIN HYDROCHLORIDE [Concomitant]
     Active Substance: DOTHIEPIN HYDROCHLORIDE
     Indication: DEPRESSION
     Dosage: 175 MG, DAILY
     Route: 048
     Dates: start: 20120611
  5. ZOPLICONE [Concomitant]
     Active Substance: ZOPICLONE
     Dosage: 3.75 MG, DAILY
     Route: 048
     Dates: start: 20090508
  6. SENNA [Concomitant]
     Active Substance: SENNA LEAF\SENNOSIDES\SENNOSIDES A AND B
     Indication: PRODUCT USED FOR UNKNOWN INDICATION
     Dosage: 15 MG, DAILY
     Route: 048
     Dates: start: 20090720
  7. DOSULEPIN HYDROCHLORIDE [Concomitant]
     Active Substance: DOTHIEPIN HYDROCHLORIDE
     Indication: DEPRESSED MOOD
     Dosage: 150 MG, DAILY
     Route: 048
     Dates: start: 20020227, end: 20120611

REACTIONS (5)
  - Left ventricular dysfunction [Not Recovered/Not Resolved]
  - Constipation [Not Recovered/Not Resolved]
  - Aortic valve incompetence [Not Recovered/Not Resolved]
  - Electrocardiogram T wave inversion [Not Recovered/Not Resolved]
  - Cystocele [Not Recovered/Not Resolved]

NARRATIVE: CASE EVENT DATE: 20090619
